FAERS Safety Report 23735505 (Version 1)
Quarter: 2024Q2

REPORT INFORMATION
  Report Type: Other
  Country: US (occurrence: US)
  Receive Date: 20240412
  Receipt Date: 20240412
  Transmission Date: 20240717
  Serious: Yes (Life-Threatening, Hospitalization)
  Sender: FDA-Public Use
  Company Number: US-Avondale Pharmaceuticals, LLC-2155496

PATIENT
  Age: 40 Year
  Sex: Male

DRUGS (4)
  1. NIACOR [Suspect]
     Active Substance: NIACIN
     Indication: Familial partial lipodystrophy
     Route: 065
  2. FENOFIBRATE [Suspect]
     Active Substance: FENOFIBRATE
     Route: 065
  3. OMEGA-3 ACIDS [Suspect]
     Active Substance: OMEGA-3 FATTY ACIDS
     Route: 065
  4. LEPTIN HUMAN [Suspect]
     Active Substance: LEPTIN HUMAN
     Route: 065

REACTIONS (1)
  - Drug ineffective [Unknown]
